FAERS Safety Report 20481732 (Version 3)
Quarter: 2022Q2

REPORT INFORMATION
  Report Type: Spontaneous
  Country: US (occurrence: US)
  Receive Date: 20220216
  Receipt Date: 20220510
  Transmission Date: 20220721
  Serious: Yes (Other)
  Sender: FDA-Public Use
  Company Number: US-BAYER-2022A021021

PATIENT
  Age: 12 Year
  Sex: Male

DRUGS (2)
  1. KOGENATE FS [Suspect]
     Active Substance: ANTIHEMOPHILIC FACTOR, HUMAN RECOMBINANT
     Dosage: 2000 IU, PRN
     Route: 042
  2. KOGENATE FS [Suspect]
     Active Substance: ANTIHEMOPHILIC FACTOR, HUMAN RECOMBINANT
     Dosage: UNK, FOR THE KNEE BRUISING TREATMENT

REACTIONS (5)
  - Haemarthrosis [None]
  - Contusion [None]
  - Fall [None]
  - Joint injury [None]
  - Fall [None]

NARRATIVE: CASE EVENT DATE: 20220207
